FAERS Safety Report 21786123 (Version 2)
Quarter: 2024Q2

REPORT INFORMATION
  Report Type: Other
  Country: DE (occurrence: DE)
  Receive Date: 20221228
  Receipt Date: 20240618
  Transmission Date: 20240716
  Serious: Yes (Other)
  Sender: FDA-Public Use
  Company Number: DE-CELLTRION INC.-2022DE021605

PATIENT

DRUGS (4)
  1. RITUXIMAB [Suspect]
     Active Substance: RITUXIMAB
     Indication: Uveitis
     Route: 042
  2. CYCLOSPORINE [Suspect]
     Active Substance: CYCLOSPORINE
     Indication: Uveitis
  3. OZURDEX [Suspect]
     Active Substance: DEXAMETHASONE
     Indication: Uveitis
     Route: 042
  4. DEXAMETHASONE [Suspect]
     Active Substance: DEXAMETHASONE
     Indication: Uveitis
     Route: 042

REACTIONS (3)
  - Cataract [Unknown]
  - Drug ineffective [Recovered/Resolved]
  - Intentional product use issue [Unknown]
